FAERS Safety Report 23810779 (Version 3)
Quarter: 2024Q2

REPORT INFORMATION
  Report Type: Report from Study
  Country: CA (occurrence: CA)
  Receive Date: 20240502
  Receipt Date: 20240627
  Transmission Date: 20240716
  Serious: Yes (Hospitalization)
  Sender: FDA-Public Use
  Company Number: CA-ABBVIE-5742002

PATIENT
  Age: 67 Year
  Sex: Female

DRUGS (1)
  1. SKYRIZI [Suspect]
     Active Substance: RISANKIZUMAB-RZAA
     Indication: Crohn^s disease
     Route: 042
     Dates: start: 20240402

REACTIONS (13)
  - Dyspnoea [Unknown]
  - Feeling abnormal [Unknown]
  - Abdominal pain [Unknown]
  - Renal impairment [Unknown]
  - Diarrhoea [Unknown]
  - Weight decreased [Unknown]
  - Arthralgia [Unknown]
  - Pain in extremity [Unknown]
  - Haemoglobin decreased [Unknown]
  - Blood magnesium decreased [Unknown]
  - Vitamin B12 decreased [Unknown]
  - Illness [Unknown]
  - Unevaluable event [Unknown]

NARRATIVE: CASE EVENT DATE: 20240101
